FAERS Safety Report 7345001-9 (Version None)
Quarter: 2011Q1

REPORT INFORMATION
  Report Type: 
  Country: None (occurrence: None)
  Receive Date: 20110302
  Receipt Date: 20110208
  Transmission Date: 20110831
  Serious: No
  Sender: FDA-Public Use
  Company Number: 2011-00058

PATIENT
  Age: 43 Year
  Sex: Female
  Weight: 56.6996 kg

DRUGS (1)
  1. ZICAM COLD REMEDY GEL SWABS [Suspect]
     Dates: start: 20080101

REACTIONS (2)
  - AGEUSIA [None]
  - ANOSMIA [None]
